FAERS Safety Report 24019306 (Version 1)
Quarter: 2024Q2

REPORT INFORMATION
  Report Type: Spontaneous
  Country: US (occurrence: US)
  Receive Date: 20240627
  Receipt Date: 20240627
  Transmission Date: 20240716
  Serious: Yes (Other)
  Sender: FDA-Public Use
  Company Number: US-PFIZER INC-202400200729

PATIENT

DRUGS (2)
  1. BUTORPHANOL TARTRATE [Suspect]
     Active Substance: BUTORPHANOL TARTRATE
     Indication: Pain
     Dosage: 0.5 MG, AS NEEDED (0.5MG IV Q (EVERY) 1 HR PRN (AS NEEDED); RECD ONE DOSE)
     Route: 064
     Dates: start: 20240623, end: 20240624
  2. BUTORPHANOL TARTRATE [Suspect]
     Active Substance: BUTORPHANOL TARTRATE
     Dosage: 0.5 MG, AS NEEDED (0.5MG IV Q (EVERY) 1 HR PRN (AS NEEDED); RECD ONE DOSE)
     Route: 064
     Dates: start: 20240623, end: 20240624

REACTIONS (2)
  - Maternal exposure during pregnancy [Recovered/Resolved]
  - Foetal heart rate decreased [Recovered/Resolved]

NARRATIVE: CASE EVENT DATE: 20240623
